FAERS Safety Report 16149224 (Version 1)
Quarter: 2019Q2

REPORT INFORMATION
  Report Type: Spontaneous
  Country: CA (occurrence: CA)
  Receive Date: 20190402
  Receipt Date: 20190402
  Transmission Date: 20190711
  Serious: Yes (Hospitalization, Other)
  Sender: FDA-Public Use
  Company Number: CA-PFIZER INC-2019128263

PATIENT
  Age: 22 Year
  Sex: Female

DRUGS (1)
  1. CIPROFLOXACIN. [Suspect]
     Active Substance: CIPROFLOXACIN
     Dosage: UNK

REACTIONS (6)
  - Clostridium difficile infection [Unknown]
  - Drug ineffective [Unknown]
  - Dizziness [Unknown]
  - Gastrointestinal inflammation [Unknown]
  - Loss of personal independence in daily activities [Unknown]
  - Pain [Unknown]

NARRATIVE: CASE EVENT DATE: 20190322
